FAERS Safety Report 10223054 (Version 2)
Quarter: 2014Q2

REPORT INFORMATION
  Report Type: Report from Study
  Country: BR (occurrence: BR)
  Receive Date: 20140607
  Receipt Date: 20140626
  Transmission Date: 20141212
  Serious: Yes (Other)
  Sender: FDA-Public Use
  Company Number: PHHY2014BR066739

PATIENT
  Sex: Female
  Weight: 76 kg

DRUGS (10)
  1. FORASEQ [Suspect]
     Indication: BRONCHITIS
     Dosage: 2 DF, (EACH OF 2 TREATMENTS)
     Route: 055
  2. PREDNISONE [Concomitant]
     Indication: LUNG INFECTION
     Dosage: 2 DF(2 TABLET DURING 20 DAYS)
     Route: 048
  3. PREDNISONE [Concomitant]
     Dosage: 1 DF(1 TABLET DURING 20 DAYS)
     Route: 048
  4. PREDNISONE [Concomitant]
     Dosage: 0.5 DF(DURING 15 DAYS)
     Route: 048
  5. SPIRIVA [Concomitant]
     Indication: LUNG DISORDER
     Dosage: 1 DF, DAILY
     Route: 055
  6. LORATADINE [Concomitant]
     Indication: LUNG DISORDER
     Dosage: 1 DF, UNK
     Route: 048
  7. SIMVASTATIN [Concomitant]
     Indication: BLOOD CHOLESTEROL ABNORMAL
     Dosage: 1 DF, DAILY
     Route: 048
  8. SERTRALINE HYDROCHLORIDE [Concomitant]
     Indication: BLOOD PRESSURE ABNORMAL
     Dosage: 1 DF, DAILY
     Route: 048
  9. ARADOIS [Concomitant]
     Indication: LUNG DISORDER
     Dosage: 2 DF, DAILY
  10. VITAMIN D [Concomitant]
     Indication: HYPOVITAMINOSIS
     Dosage: 5 DF, DAILY
     Route: 065

REACTIONS (4)
  - Myocardial calcification [Unknown]
  - Vascular calcification [Unknown]
  - Mitral valve calcification [Unknown]
  - Dysphonia [Not Recovered/Not Resolved]
